FAERS Safety Report 9746572 (Version 2)
Quarter: 2013Q4

REPORT INFORMATION
  Report Type: Spontaneous
  Country: US (occurrence: US)
  Receive Date: 20131211
  Receipt Date: 20131220
  Transmission Date: 20140711
  Serious: Yes (Disabling, Other)
  Sender: FDA-Public Use
  Company Number: US-PFIZER INC-2013352951

PATIENT
  Age: 59 Year
  Sex: Male
  Weight: 99.77 kg

DRUGS (8)
  1. LYRICA [Suspect]
     Indication: NEURALGIA
     Dosage: 75 MG, 2X/DAY
  2. LYRICA [Suspect]
     Dosage: 150 MG, 2X/DAY
  3. LYRICA [Suspect]
     Dosage: 75 MG, 1X/DAY
  4. LYRICA [Suspect]
     Dosage: 100 MG, 3X/DAY
  5. LYRICA [Suspect]
     Dosage: UNK
  6. OXYCODONE [Concomitant]
     Dosage: UNK
  7. OXYCONTIN [Concomitant]
     Dosage: UNK
  8. VENLAFAXINE [Concomitant]
     Dosage: UNK

REACTIONS (2)
  - Off label use [Unknown]
  - Neuralgia [Recovering/Resolving]
